FAERS Safety Report 4745959-8 (Version None)
Quarter: 2005Q3

REPORT INFORMATION
  Report Type: 
  Country: None (occurrence: None)
  Receive Date: 20050816
  Receipt Date: 20050808
  Transmission Date: 20060218
  Serious: Yes (Death, Life-Threatening, Other)
  Sender: FDA-Public Use
  Company Number: 2005-08-0058

PATIENT
  Sex: Male

DRUGS (5)
  1. ASPIRIN [Suspect]
     Indication: DRUG USE FOR UNKNOWN INDICATION
     Route: 065
  2. ENOXAPARIN SODIUM [Suspect]
     Indication: DRUG USE FOR UNKNOWN INDICATION
     Route: 065
  3. BETA BLOCKER [Concomitant]
  4. ANGIOTENSIN-CONVERTING ENZYME INHIBITOR (UNSPECIFIED) [Concomitant]
  5. INTEGRILIN [Concomitant]
     Indication: MYOCARDIAL INFARCTION
     Route: 042
     Dates: start: 20050711, end: 20050714

REACTIONS (6)
  - CARDIAC ARREST [None]
  - DEATH [None]
  - ELECTROMECHANICAL DISSOCIATION [None]
  - HAEMORRHAGE [None]
  - PLATELET COUNT DECREASED [None]
  - RESPIRATORY ARREST [None]
